FAERS Safety Report 18445257 (Version 2)
Quarter: 2022Q4

REPORT INFORMATION
  Report Type: Report from Study
  Country: RO (occurrence: RO)
  Receive Date: 20201030
  Receipt Date: 20221216
  Transmission Date: 20230113
  Serious: Yes (Death)
  Sender: FDA-Public Use
  Company Number: RO-NOVARTISPH-NVSC2020RO291424

PATIENT
  Age: 70 Year
  Sex: Male

DRUGS (1)
  1. ENTRESTO [Suspect]
     Active Substance: SACUBITRIL\VALSARTAN
     Indication: Hypertension
     Dosage: UNK, SINCE A LONG TIME AGO
     Route: 065

REACTIONS (3)
  - Intestinal obstruction [Fatal]
  - Cerebrovascular accident [Fatal]
  - Product use in unapproved indication [Unknown]

NARRATIVE: CASE EVENT DATE: 20200320
